FAERS Safety Report 7806518-3 (Version None)
Quarter: 2011Q4

REPORT INFORMATION
  Report Type: 
  Country: None (occurrence: None)
  Receive Date: 20111011
  Receipt Date: 20111004
  Transmission Date: 20120403
  Serious: Yes (Other)
  Sender: FDA-Public Use
  Company Number: CA-PFIZER INC-2011236520

PATIENT
  Age: 75 Year
  Sex: Female

DRUGS (4)
  1. COZAAR [Concomitant]
     Indication: HYPERTENSION
     Dosage: UNK
  2. VITAMIN B-12 [Concomitant]
     Indication: HYPERTENSION
     Dosage: UNK
  3. TIMOLOL [Concomitant]
     Indication: GLAUCOMA
     Dosage: UNK
  4. XALATAN [Suspect]
     Indication: GLAUCOMA
     Dosage: 1 GTT, 1X/DAY IN BOTH EYES
     Route: 047

REACTIONS (1)
  - DIABETIC EYE DISEASE [None]
